FAERS Safety Report 4688432-8 (Version None)
Quarter: 2005Q2

REPORT INFORMATION
  Report Type: 
  Country: None (occurrence: None)
  Receive Date: 20050609
  Receipt Date: 20050609
  Transmission Date: 20051028
  Serious: Yes (Hospitalization)
  Sender: FDA-Public Use
  Company Number: None

PATIENT
  Age: 59 Year
  Sex: Female
  Weight: 93 kg

DRUGS (1)
  1. LOVENOX [Suspect]
     Indication: ATRIAL FLUTTER
     Dosage: 90 MG Q 12 HR
     Dates: start: 20050321, end: 20050326

REACTIONS (3)
  - HAEMATOMA [None]
  - HAEMOGLOBIN DECREASED [None]
  - RETROPERITONEAL HAEMORRHAGE [None]
